FAERS Safety Report 26206350 (Version 1)
Quarter: 2025Q4

REPORT INFORMATION
  Report Type: Spontaneous
  Country: US (occurrence: US)
  Receive Date: 20251229
  Receipt Date: 20251229
  Transmission Date: 20260117
  Serious: No
  Sender: GALDERMA
  Company Number: US-GALDERMA-US2025026265

PATIENT

DRUGS (10)
  1. NEMLUVIO [Suspect]
     Active Substance: NEMOLIZUMAB-ILTO
     Indication: Dermatitis atopic
     Dosage: UNK
     Route: 058
     Dates: start: 20250530, end: 20250530
  2. NEMLUVIO [Suspect]
     Active Substance: NEMOLIZUMAB-ILTO
     Dosage: UNK
     Route: 058
     Dates: start: 2025, end: 2025
  3. NEMLUVIO [Suspect]
     Active Substance: NEMOLIZUMAB-ILTO
     Dosage: UNK
     Route: 058
     Dates: start: 2025, end: 2025
  4. NEMLUVIO [Suspect]
     Active Substance: NEMOLIZUMAB-ILTO
     Dosage: UNK
     Route: 058
     Dates: start: 2025, end: 2025
  5. NEMLUVIO [Suspect]
     Active Substance: NEMOLIZUMAB-ILTO
     Dosage: UNK
     Route: 058
     Dates: start: 2025, end: 2025
  6. NEMLUVIO [Suspect]
     Active Substance: NEMOLIZUMAB-ILTO
     Dosage: UNK (INCOMPLETE DOSE)
     Route: 058
     Dates: start: 20251118, end: 20251118
  7. SPRIX [Concomitant]
     Active Substance: KETOROLAC TROMETHAMINE
     Indication: Tension headache
     Dosage: 1 DOSAGE FORM (SPRAY), QD
     Route: 061
  8. QULIPTA [Concomitant]
     Active Substance: ATOGEPANT
     Indication: Tension headache
     Dosage: 60 MILLIGRAM, DAILY
     Route: 065
     Dates: start: 2025
  9. QULIPTA [Concomitant]
     Active Substance: ATOGEPANT
     Indication: Migraine
  10. UBRELVY [Concomitant]
     Active Substance: UBROGEPANT
     Indication: Migraine
     Dosage: 100 MILLIGRAM
     Route: 065
     Dates: start: 2025

REACTIONS (3)
  - Alopecia [Unknown]
  - Device malfunction [Recovered/Resolved]
  - Incorrect dose administered [Recovered/Resolved]

NARRATIVE: CASE EVENT DATE: 20250901
